FAERS Safety Report 4262056-9 (Version None)
Quarter: 2004Q1

REPORT INFORMATION
  Report Type: 
  Country: None (occurrence: None)
  Receive Date: 20040102
  Receipt Date: 20031231
  Transmission Date: 20041129
  Serious: Yes (Hospitalization)
  Sender: FDA-Public Use
  Company Number: CA-GLAXOSMITHKLINE-A0490882A

PATIENT
  Age: 66 Year
  Sex: Male
  Weight: 108.2 kg

DRUGS (1)
  1. AVANDIA [Suspect]
     Indication: ILL-DEFINED DISORDER
     Dosage: 4MG TWICE PER DAY
     Route: 048
     Dates: start: 20030625

REACTIONS (2)
  - CHEST DISCOMFORT [None]
  - DYSPNOEA [None]
